FAERS Safety Report 23279084 (Version 1)
Quarter: 2023Q4

REPORT INFORMATION
  Report Type: Spontaneous
  Country: None (occurrence: FR)
  Receive Date: 20231209
  Receipt Date: 20231209
  Transmission Date: 20240110
  Serious: Yes (Other)
  Sender: FDA-Public Use
  Company Number: FR-Ascend Therapeutics US, LLC-2149165

PATIENT
  Age: 27 Year
  Sex: Male

DRUGS (3)
  1. ANDROGEL [Suspect]
     Active Substance: TESTOSTERONE
     Indication: Product used for unknown indication
     Route: 065
     Dates: start: 2023
  2. TESTOSTERONE [Suspect]
     Active Substance: TESTOSTERONE
     Route: 065
     Dates: start: 2023
  3. COCAINE [Suspect]
     Active Substance: COCAINE
     Route: 065
     Dates: start: 2023

REACTIONS (3)
  - Substance use disorder [Unknown]
  - Hallucinations, mixed [Unknown]
  - Aggression [Unknown]
